FAERS Safety Report 7045627-6 (Version None)
Quarter: 2010Q4

REPORT INFORMATION
  Report Type: 
  Country: None (occurrence: None)
  Receive Date: 20101014
  Receipt Date: 20101004
  Transmission Date: 20110411
  Serious: Yes (Other)
  Sender: FDA-Public Use
  Company Number: TR-ROCHE-731787

PATIENT

DRUGS (8)
  1. MYCOPHENOLATE MOFETIL [Suspect]
     Route: 065
  2. CYCLOSPORINE [Suspect]
     Route: 065
  3. PREDNISOLONE [Suspect]
     Route: 065
  4. MYCOPHENOLATE MOFETIL [Suspect]
     Route: 065
  5. SIROLIMUS [Suspect]
     Route: 065
  6. TACROLIMUS [Suspect]
     Route: 065
  7. AZATHIOPRINE [Suspect]
     Route: 065
  8. EVEROLIMUS [Suspect]
     Route: 065

REACTIONS (23)
  - ACNE [None]
  - ACTINIC KERATOSIS [None]
  - ALOPECIA [None]
  - BASAL CELL CARCINOMA [None]
  - CANDIDIASIS [None]
  - CELLULITIS [None]
  - DERMATOPHYTOSIS [None]
  - DRUG ERUPTION [None]
  - FLUSHING [None]
  - FOLLICULITIS [None]
  - HERPES SIMPLEX [None]
  - HERPES ZOSTER [None]
  - HYPERKERATOSIS [None]
  - HYPERTRICHOSIS [None]
  - KAPOSI'S SARCOMA [None]
  - MOLLUSCUM CONTAGIOSUM [None]
  - ONYCHOMYCOSIS [None]
  - SEBACEOUS HYPERPLASIA [None]
  - SEBORRHOEA [None]
  - SKIN PAPILLOMA [None]
  - SKIN STRIAE [None]
  - TELANGIECTASIA [None]
  - TINEA VERSICOLOUR [None]
